FAERS Safety Report 9751498 (Version 1)
Quarter: 2013Q4

REPORT INFORMATION
  Report Type: Spontaneous
  Country: US (occurrence: US)
  Receive Date: 20131212
  Receipt Date: 20131212
  Transmission Date: 20140711
  Serious: No
  Sender: FDA-Public Use
  Company Number: US-PURDUE-USA-2013-0107711

PATIENT
  Sex: Male

DRUGS (1)
  1. HYDROMORPHONE HCL (SIMILAR TO 19-892) [Suspect]
     Indication: PAIN
     Dosage: 8 MG, UNK
     Dates: start: 20131004

REACTIONS (2)
  - Extra dose administered [Unknown]
  - Drug ineffective [Unknown]
